FAERS Safety Report 5218269-2 (Version None)
Quarter: 2007Q1

REPORT INFORMATION
  Report Type: 
  Country: None (occurrence: None)
  Receive Date: 20061130
  Receipt Date: 20060412
  Transmission Date: 20070707
  Serious: Yes (Other)
  Sender: FDA-Public Use
  Company Number: US200603001098

PATIENT
  Age: 19 Year
  Sex: Male

DRUGS (2)
  1. ZYPREXA ZYDIS [Suspect]
     Indication: ACUTE PSYCHOSIS
     Dosage: 10 MG
  2. HALDOL DECANOATE (HALOPERIDOL DECANOATE) [Concomitant]

REACTIONS (2)
  - HYPOTENSION [None]
  - SYNCOPE [None]
